FAERS Safety Report 7249645-4 (Version None)
Quarter: 2011Q1

REPORT INFORMATION
  Report Type: 
  Country: None (occurrence: None)
  Receive Date: 20110128
  Receipt Date: 20101216
  Transmission Date: 20110831
  Serious: Yes (Hospitalization, Other)
  Sender: FDA-Public Use
  Company Number: US-BAYER-201025488NA

PATIENT
  Sex: Female
  Weight: 57.143 kg

DRUGS (5)
  1. ATIVAN [Concomitant]
     Dosage: UNK UNK, PRN
     Route: 048
  2. IBUPROFEN [Concomitant]
  3. AZITHROMYCIN [Concomitant]
  4. ACETAMINOPHEN W/ PROPOXYPHENE HCL [Concomitant]
  5. YAZ [Suspect]
     Indication: ORAL CONTRACEPTION
     Dosage: UNK UNK, QD
     Route: 048
     Dates: start: 20061104, end: 20080611

REACTIONS (5)
  - DYSPNOEA [None]
  - PULMONARY INFARCTION [None]
  - PAIN [None]
  - PULMONARY EMBOLISM [None]
  - ANXIETY [None]
